FAERS Safety Report 5088620-5 (Version None)
Quarter: 2006Q3

REPORT INFORMATION
  Report Type: 
  Country: None (occurrence: None)
  Receive Date: 20060825
  Receipt Date: 20060609
  Transmission Date: 20061208
  Serious: Yes (Life-Threatening)
  Sender: FDA-Public Use
  Company Number: JP-AVENTIS-200611801JP

PATIENT
  Age: 40 Year
  Sex: Male
  Weight: 73 kg

DRUGS (13)
  1. TAXOTERE [Suspect]
     Indication: NON-SMALL CELL LUNG CANCER STAGE IV
     Route: 041
     Dates: start: 20060607, end: 20060607
  2. DECADRON [Concomitant]
     Indication: PREMEDICATION
     Route: 041
     Dates: start: 20060607, end: 20060607
  3. ZANTAC [Concomitant]
     Indication: PREMEDICATION
     Route: 041
     Dates: start: 20060607, end: 20060607
  4. KYTRIL [Concomitant]
     Indication: PREMEDICATION
     Route: 041
     Dates: start: 20060607, end: 20060607
  5. RADIOTHERAPY [Concomitant]
     Indication: NON-SMALL CELL LUNG CANCER STAGE IV
     Dosage: DOSE: 46 GY/TOTAL
     Dates: start: 20060516, end: 20060615
  6. LOXONIN [Concomitant]
     Indication: PAIN
     Route: 048
     Dates: start: 20060305
  7. MS CONTIN [Concomitant]
     Indication: PAIN
     Route: 048
     Dates: start: 20060403
  8. ACINON [Concomitant]
     Indication: GASTRIC ULCER
     Route: 048
     Dates: start: 20060225
  9. DEPAKENE [Concomitant]
     Indication: GRAND MAL CONVULSION
     Route: 048
     Dates: start: 20060225
  10. MALFA                                   /JPN/ [Concomitant]
     Indication: GASTRIC ULCER
     Route: 048
     Dates: start: 20060605, end: 20060606
  11. ALLOID [Concomitant]
     Indication: GASTRIC ULCER
     Route: 048
     Dates: start: 20060605, end: 20060606
  12. RANDA [Concomitant]
     Indication: NON-SMALL CELL LUNG CANCER
     Dates: start: 20060313, end: 20060410
  13. TOPOTECIN [Concomitant]
     Indication: NON-SMALL CELL LUNG CANCER
     Dates: start: 20060313, end: 20060424

REACTIONS (4)
  - BLOOD PRESSURE DECREASED [None]
  - HYPERHIDROSIS [None]
  - SHOCK [None]
  - VOMITING [None]
